FAERS Safety Report 5354703-5 (Version None)
Quarter: 2007Q2

REPORT INFORMATION
  Report Type: 
  Country: None (occurrence: None)
  Receive Date: 20070612
  Receipt Date: 20070605
  Transmission Date: 20071010
  Serious: Yes (Hospitalization, Other)
  Sender: FDA-Public Use
  Company Number: GB-ABBOTT-07P-167-0368662-00

PATIENT
  Sex: Female
  Weight: 45.8 kg

DRUGS (12)
  1. HUMIRA [Suspect]
     Indication: RHEUMATOID ARTHRITIS
     Route: 058
     Dates: start: 20061030, end: 20070323
  2. METHOTREXATE [Concomitant]
     Indication: RHEUMATOID ARTHRITIS
     Dates: start: 20060101, end: 20070301
  3. DICLOFENAC [Concomitant]
     Indication: DRUG USE FOR UNKNOWN INDICATION
  4. DICLOFENAC [Concomitant]
  5. DICLOFENAC [Concomitant]
  6. FERROUS SULFATE [Concomitant]
     Indication: ANAEMIA
     Dates: start: 20060101
  7. FOLIC ACID [Concomitant]
     Indication: DRUG USE FOR UNKNOWN INDICATION
     Dates: end: 20070301
  8. INSULIN GLARGINE [Concomitant]
     Indication: DRUG USE FOR UNKNOWN INDICATION
  9. INSULIN ASPART [Concomitant]
     Indication: DIABETES MELLITUS
     Dates: start: 20050701
  10. TRAMADOL HCL [Concomitant]
     Indication: DRUG USE FOR UNKNOWN INDICATION
  11. CALCITONIN-SALMON [Concomitant]
     Indication: DRUG USE FOR UNKNOWN INDICATION
  12. NAPROXEN [Concomitant]
     Indication: RHEUMATOID ARTHRITIS
     Dates: start: 20061101

REACTIONS (2)
  - IRIDOCYCLITIS [None]
  - VITRITIS [None]
